FAERS Safety Report 10082840 (Version 2)
Quarter: 2014Q2

REPORT INFORMATION
  Report Type: Report from Study
  Country: BR (occurrence: BR)
  Receive Date: 20140416
  Receipt Date: 20140619
  Transmission Date: 20141212
  Serious: Yes (Other)
  Sender: FDA-Public Use
  Company Number: PHHY2014BR044894

PATIENT
  Sex: Male

DRUGS (2)
  1. ACLASTA [Suspect]
     Indication: OSTEOPOROSIS
     Dosage: UNK UKN, ONCE A YEAR
     Route: 042
     Dates: start: 2012
  2. CALCIUM D3 [Concomitant]
     Indication: OSTEOPOROSIS
     Dosage: 2 DF DAILY
     Dates: start: 2012

REACTIONS (5)
  - Venous occlusion [Not Recovered/Not Resolved]
  - Intervertebral disc protrusion [Unknown]
  - Posture abnormal [Not Recovered/Not Resolved]
  - Arthralgia [Not Recovered/Not Resolved]
  - Pain [Not Recovered/Not Resolved]
